FAERS Safety Report 16859726 (Version 1)
Quarter: 2019Q3

REPORT INFORMATION
  Report Type: Spontaneous
  Country: US (occurrence: US)
  Receive Date: 20190927
  Receipt Date: 20190927
  Transmission Date: 20191005
  Serious: Yes (Hospitalization, Other)
  Sender: FDA-Public Use
  Company Number: US-NOVOPROD-686461

PATIENT
  Sex: Female

DRUGS (1)
  1. VICTOZA [Suspect]
     Active Substance: LIRAGLUTIDE
     Indication: TYPE 2 DIABETES MELLITUS
     Dosage: UNK
     Route: 058
     Dates: start: 20171009, end: 201712

REACTIONS (3)
  - Loss of consciousness [Recovered/Resolved]
  - Diabetic ketoacidosis [Unknown]
  - Injection site infection [Recovered/Resolved with Sequelae]

NARRATIVE: CASE EVENT DATE: 2017
